FAERS Safety Report 8895673 (Version 2)
Quarter: 2013Q1

REPORT INFORMATION
  Report Type: Report from Study
  Country: US (occurrence: US)
  Receive Date: 20121107
  Receipt Date: 20130129
  Transmission Date: 20140127
  Serious: Yes (Hospitalization)
  Sender: FDA-Public Use
  Company Number: US-VERTEX PHARMACEUTICAL INC.-2012-024031

PATIENT
  Sex: Female
  Weight: 37.64 kg

DRUGS (2)
  1. VX-770 [Suspect]
     Indication: CYSTIC FIBROSIS
     Dosage: 150 MG, BID
     Dates: start: 20120208
  2. INSULIN [Concomitant]
     Indication: CYSTIC FIBROSIS RELATED DIABETES

REACTIONS (1)
  - Diabetes mellitus inadequate control [Not Recovered/Not Resolved]
